FAERS Safety Report 19113830 (Version 2)
Quarter: 2021Q2

REPORT INFORMATION
  Report Type: Spontaneous
  Country: BG (occurrence: BG)
  Receive Date: 20210408
  Receipt Date: 20210419
  Transmission Date: 20210717
  Serious: Yes (Hospitalization)
  Sender: FDA-Public Use
  Company Number: BG-ABBVIE-21K-022-3844395-00

PATIENT
  Sex: Female

DRUGS (1)
  1. MAVIRET [Suspect]
     Active Substance: GLECAPREVIR\PIBRENTASVIR
     Indication: HEPATITIS C
     Route: 048
     Dates: start: 20200529

REACTIONS (2)
  - Hepatic cirrhosis [Recovered/Resolved]
  - Skin weeping [Recovered/Resolved]

NARRATIVE: CASE EVENT DATE: 202006
